FAERS Safety Report 4441630-0 (Version None)
Quarter: 2004Q3

REPORT INFORMATION
  Report Type: 
  Country: None (occurrence: None)
  Receive Date: 20040907
  Receipt Date: 20040826
  Transmission Date: 20050211
  Serious: Yes (Disabling, Other)
  Sender: FDA-Public Use
  Company Number: 200418582GDDC

PATIENT
  Age: 53 Year
  Sex: Male

DRUGS (5)
  1. ENOXAPARIN SODIUM [Suspect]
     Indication: DEEP VEIN THROMBOSIS
     Route: 051
  2. TENORMIN [Concomitant]
     Dosage: DOSE: UNKNOWN
  3. XANAX [Concomitant]
  4. EFFEXOR [Concomitant]
  5. KARVEA [Concomitant]

REACTIONS (4)
  - ABDOMINAL DISTENSION [None]
  - MOTOR DYSFUNCTION [None]
  - PARAESTHESIA [None]
  - PARALYSIS [None]
